FAERS Safety Report 22253577 (Version 1)
Quarter: 2023Q2

REPORT INFORMATION
  Report Type: Spontaneous
  Country: US (occurrence: US)
  Receive Date: 20230426
  Receipt Date: 20230426
  Transmission Date: 20230722
  Serious: Yes (Hospitalization, Other)
  Sender: FDA-Public Use
  Company Number: US-BRISTOL-MYERS SQUIBB COMPANY-2023-056436

PATIENT
  Age: 51 Year
  Sex: Female

DRUGS (2)
  1. POMALYST [Suspect]
     Active Substance: POMALIDOMIDE
     Indication: Plasma cell myeloma
     Dosage: TAKE 1 CAPSULE BY MOUTH ONE TIME PER DAY ON DAYS 1 TO 21, OFF DAYS 22 TO 28 OF EACH CYCLE
     Route: 048
     Dates: start: 202211, end: 202303
  2. POMALYST [Suspect]
     Active Substance: POMALIDOMIDE
     Dosage: TAKE 1 CAPSULE BY MOUTH ONE TIME PER DAY ON DAYS 1 TO 21, OFF DAYS 22 TO 28 OF EACH CYCLE
     Route: 048
     Dates: start: 20230412

REACTIONS (1)
  - Septic shock [Recovering/Resolving]
